FAERS Safety Report 14597552 (Version 1)
Quarter: 2018Q1

REPORT INFORMATION
  Report Type: Spontaneous
  Country: GB (occurrence: GB)
  Receive Date: 20180305
  Receipt Date: 20180305
  Transmission Date: 20180509
  Serious: Yes (Other)
  Sender: FDA-Public Use
  Company Number: GB-009507513-1802GBR012349

PATIENT

DRUGS (2)
  1. ISENTRESS [Suspect]
     Active Substance: RALTEGRAVIR POTASSIUM
     Dosage: 400 MG, BID
     Route: 048
  2. ISENTRESS [Suspect]
     Active Substance: RALTEGRAVIR POTASSIUM
     Dosage: 1200 MG, QD
     Route: 048

REACTIONS (13)
  - Hypertension [Recovered/Resolved]
  - Contraindicated product administered [Unknown]
  - Tremor [Recovered/Resolved]
  - Headache [Recovered/Resolved]
  - Dissociation [Recovered/Resolved]
  - Decreased appetite [Recovered/Resolved]
  - Hyposmia [Recovered/Resolved]
  - Pyrexia [Recovered/Resolved]
  - Oligodipsia [Recovered/Resolved]
  - Heart rate increased [Recovered/Resolved]
  - Flat affect [Recovered/Resolved]
  - Therapeutic response unexpected [Unknown]
  - Confusional state [Recovered/Resolved]
